FAERS Safety Report 6921204-X (Version None)
Quarter: 2010Q3

REPORT INFORMATION
  Report Type: 
  Country: None (occurrence: None)
  Receive Date: 20100812
  Receipt Date: 20100804
  Transmission Date: 20110219
  Serious: Yes (Hospitalization)
  Sender: FDA-Public Use
  Company Number: A0865967A

PATIENT
  Age: 64 Year
  Sex: Male
  Weight: 118.2 kg

DRUGS (9)
  1. AVANDIA [Suspect]
     Dosage: 4MG PER DAY
     Route: 048
     Dates: start: 20020101, end: 20030101
  2. LANTUS [Concomitant]
  3. NORVASC [Concomitant]
  4. TYLENOL W/ CODEINE [Concomitant]
  5. ZOCOR [Concomitant]
  6. ALTACE [Concomitant]
  7. GLUCOPHAGE [Concomitant]
  8. AMBIEN [Concomitant]
  9. NEXIUM [Concomitant]

REACTIONS (2)
  - ANGINA PECTORIS [None]
  - CARDIAC FAILURE CONGESTIVE [None]
